FAERS Safety Report 13606022 (Version 1)
Quarter: 2017Q2

REPORT INFORMATION
  Report Type: Spontaneous
  Country: PR (occurrence: PR)
  Receive Date: 20170602
  Receipt Date: 20170602
  Transmission Date: 20170830
  Serious: No
  Sender: FDA-Public Use
  Company Number: PR-PFIZER INC-2017238318

PATIENT
  Age: 77 Year
  Sex: Male
  Weight: 69.85 kg

DRUGS (8)
  1. LOSARTAN. [Concomitant]
     Active Substance: LOSARTAN
     Indication: HYPERTENSION
     Dosage: 25 MG, 1X/DAY
  2. VITAMIN B12 [Concomitant]
     Active Substance: CYANOCOBALAMIN
     Dosage: ONCE A DAY
     Dates: end: 2017
  3. VITAMIN C [Concomitant]
     Active Substance: ASCORBIC ACID
     Dosage: ONCE A DAY
     Dates: end: 2017
  4. VITAMIN D /00107901/ [Concomitant]
     Active Substance: ERGOCALCIFEROL
     Indication: VITAMIN SUPPLEMENTATION
     Dosage: ONCE A DAY
     Dates: end: 2017
  5. TOVIAZ [Suspect]
     Active Substance: FESOTERODINE FUMARATE
     Indication: URINARY INCONTINENCE
     Dosage: 4MG ONCE A DAY IN THE MORNING
     Dates: start: 201701, end: 201705
  6. CENTRUM SILVER [Concomitant]
     Active Substance: MINERALS\VITAMINS
     Dosage: ONCE A DAY
     Dates: end: 2017
  7. CALCIUM [Concomitant]
     Active Substance: CALCIUM
     Dosage: ONCE A DAY
     Dates: end: 2017
  8. FOLIC ACID. [Concomitant]
     Active Substance: FOLIC ACID
     Dosage: 1 MG, 1X/DAY

REACTIONS (1)
  - Constipation [Recovered/Resolved]

NARRATIVE: CASE EVENT DATE: 2017
